FAERS Safety Report 9859590 (Version 1)
Quarter: 2014Q1

REPORT INFORMATION
  Report Type: Spontaneous
  Country: AR (occurrence: AR)
  Receive Date: 20140131
  Receipt Date: 20140131
  Transmission Date: 20141002
  Serious: Yes (Other)
  Sender: FDA-Public Use
  Company Number: PHHY2014AR009302

PATIENT
  Age: 70 Year
  Sex: 0

DRUGS (6)
  1. PREDNISOLONE [Suspect]
  2. ABIRATERONE [Suspect]
  3. DEGARELIX [Concomitant]
  4. DALTEPARIN [Concomitant]
  5. ZOLEDRONIC ACID [Concomitant]
  6. PANTOPRAZOLE [Concomitant]

REACTIONS (1)
  - Thrombocytopenia [Unknown]
